FAERS Safety Report 18200410 (Version 2)
Quarter: 2020Q4

REPORT INFORMATION
  Report Type: Spontaneous
  Country: US (occurrence: US)
  Receive Date: 20200826
  Receipt Date: 20201110
  Transmission Date: 20210113
  Serious: Yes (Other)
  Sender: FDA-Public Use
  Company Number: US-SA-2020SA221630

PATIENT

DRUGS (2)
  1. ZANTAC [Suspect]
     Active Substance: RANITIDINE HYDROCHLORIDE
     Dosage: 150 MG (TWO DOSES PER DAY ABOUT 5-7 TIMES PER WEEK)
  2. ZANTAC [Suspect]
     Active Substance: RANITIDINE HYDROCHLORIDE
     Dosage: 75 MG (TWO DOSES PER DAY ABOUT 5-7 TIMES PER WEEK)
     Dates: start: 2004

REACTIONS (5)
  - Carcinogenicity [Recovered/Resolved]
  - Bladder cancer [Recovered/Resolved]
  - Metastases to lymph nodes [Recovered/Resolved]
  - Ureteric cancer [Unknown]
  - Lymphoma [Unknown]

NARRATIVE: CASE EVENT DATE: 2015
